FAERS Safety Report 12891493 (Version 1)
Quarter: 2016Q4

REPORT INFORMATION
  Report Type: Spontaneous
  Country: US (occurrence: US)
  Receive Date: 20161026
  Receipt Date: 20161026
  Transmission Date: 20170207
  Serious: Yes (Death, Life-Threatening, Hospitalization, Other)
  Sender: FDA-Public Use
  Company Number: None

PATIENT
  Age: 74 Year
  Sex: Male
  Weight: 85.5 kg

DRUGS (2)
  1. DILAUDID [Suspect]
     Active Substance: HYDROMORPHONE HYDROCHLORIDE
  2. AMBIEN [Suspect]
     Active Substance: ZOLPIDEM TARTRATE

REACTIONS (18)
  - Screaming [None]
  - Joint injury [None]
  - Sepsis [None]
  - Head injury [None]
  - Fatigue [None]
  - Staphylococcus test positive [None]
  - Hypopnoea [None]
  - Mental disorder [None]
  - Coma [None]
  - Derealisation [None]
  - Seizure [None]
  - Unresponsive to stimuli [None]
  - Aggression [None]
  - Fall [None]
  - Amnesia [None]
  - Bedridden [None]
  - Pyrexia [None]
  - Multiple organ dysfunction syndrome [None]

NARRATIVE: CASE EVENT DATE: 20160817
